FAERS Safety Report 9771519 (Version 2)
Quarter: 2014Q1

REPORT INFORMATION
  Report Type: Spontaneous
  Country: US (occurrence: US)
  Receive Date: 20131219
  Receipt Date: 20140113
  Transmission Date: 20141002
  Serious: No
  Sender: FDA-Public Use
  Company Number: US-BIOGENIDEC-2013BI119219

PATIENT
  Sex: Female

DRUGS (1)
  1. TYSABRI [Suspect]
     Indication: MULTIPLE SCLEROSIS
     Route: 042
     Dates: start: 20120106

REACTIONS (12)
  - Frustration [Unknown]
  - Anxiety [Unknown]
  - Weight gain poor [Unknown]
  - Memory impairment [Unknown]
  - Diarrhoea [Unknown]
  - Hypoaesthesia [Unknown]
  - Stress [Unknown]
  - Underweight [Unknown]
  - Fear [Unknown]
  - Malaise [Unknown]
  - Drug effect decreased [Unknown]
  - Multiple sclerosis [Unknown]
